FAERS Safety Report 5080395-9 (Version None)
Quarter: 2006Q3

REPORT INFORMATION
  Report Type: 
  Country: None (occurrence: None)
  Receive Date: 20060815
  Receipt Date: 20060720
  Transmission Date: 20061208
  Serious: Yes (Hospitalization)
  Sender: FDA-Public Use
  Company Number: ZA-ROCHE-456212

PATIENT
  Age: 73 Year
  Sex: Female

DRUGS (4)
  1. CAPECITABINE [Suspect]
     Indication: BREAST CANCER
     Route: 048
     Dates: start: 20060622, end: 20060703
  2. OMEPRAZOLE [Concomitant]
     Dates: start: 20050615
  3. CELECOXIB [Concomitant]
     Dates: start: 20001215, end: 20060713
  4. NATRILIX [Concomitant]
     Dates: start: 20010115, end: 20060713

REACTIONS (11)
  - ANOREXIA [None]
  - BLOOD CALCIUM DECREASED [None]
  - BLOOD PHOSPHORUS DECREASED [None]
  - BLOOD UREA INCREASED [None]
  - DEHYDRATION [None]
  - DIARRHOEA [None]
  - FATIGUE [None]
  - HYPONATRAEMIA [None]
  - MUCOSAL INFLAMMATION [None]
  - NAUSEA [None]
  - PELVIC FRACTURE [None]
